FAERS Safety Report 6342178-9 (Version None)
Quarter: 2009Q3

REPORT INFORMATION
  Report Type: 
  Country: None (occurrence: None)
  Receive Date: 20090903
  Receipt Date: 20090903
  Transmission Date: 20100115
  Serious: Yes (Life-Threatening)
  Sender: FDA-Public Use
  Company Number: None

PATIENT
  Sex: Female
  Weight: 77.1115 kg

DRUGS (3)
  1. AVELOX [Suspect]
     Indication: COUGH
     Dosage: 400 MG 1 DOZE ORAL
     Route: 048
     Dates: start: 20090201
  2. AVELOX [Suspect]
     Indication: INFECTION
     Dosage: 400 MG 1 DOZE ORAL
     Route: 048
     Dates: start: 20090201
  3. LEVAQUIN [Concomitant]

REACTIONS (16)
  - ABDOMINAL PAIN LOWER [None]
  - ANXIETY [None]
  - BLOOD PRESSURE DECREASED [None]
  - DIZZINESS [None]
  - DYSPNOEA [None]
  - ERYTHEMA [None]
  - HYPOAESTHESIA [None]
  - IMMOBILE [None]
  - MALAISE [None]
  - NAUSEA [None]
  - NO REACTION ON PREVIOUS EXPOSURE TO DRUG [None]
  - PARAESTHESIA [None]
  - SPEECH DISORDER [None]
  - SWELLING [None]
  - VISUAL IMPAIRMENT [None]
  - VOMITING [None]
